FAERS Safety Report 10206238 (Version 1)
Quarter: 2014Q2

REPORT INFORMATION
  Report Type: Spontaneous
  Country: US (occurrence: None)
  Receive Date: 20140527
  Receipt Date: 20140527
  Transmission Date: 20141212
  Serious: Yes (Other)
  Sender: FDA-Public Use
  Company Number: None

PATIENT
  Age: 55 Year
  Sex: Female
  Weight: 107.96 kg

DRUGS (1)
  1. METOPROLOL ER [Suspect]
     Indication: HYPERTENSION
     Route: 048

REACTIONS (9)
  - Weight increased [None]
  - Dyspnoea [None]
  - Headache [None]
  - Heart rate decreased [None]
  - Hypertension [None]
  - Fatigue [None]
  - Peripheral swelling [None]
  - Peripheral swelling [None]
  - Palpitations [None]
